FAERS Safety Report 5922994-5 (Version None)
Quarter: 2008Q4

REPORT INFORMATION
  Report Type: 
  Country: None (occurrence: None)
  Receive Date: 20081018
  Receipt Date: 20081007
  Transmission Date: 20090506
  Serious: Yes (Life-Threatening, Other)
  Sender: FDA-Public Use
  Company Number: US-PFIZER INC-2008048431

PATIENT
  Sex: Female
  Weight: 83.5 kg

DRUGS (9)
  1. CHANTIX [Suspect]
     Indication: SMOKING CESSATION THERAPY
     Dates: start: 20080514, end: 20080611
  2. XANAX [Suspect]
  3. LITHIUM CARBONATE [Concomitant]
  4. PAXIL [Concomitant]
  5. SEROQUEL [Concomitant]
  6. CLONAZEPAM [Concomitant]
  7. FLUNISOLIDE [Concomitant]
     Route: 045
     Dates: start: 20080514
  8. LORATADINE [Concomitant]
     Route: 048
     Dates: start: 20080514
  9. TRAMADOL HCL [Concomitant]
     Route: 048

REACTIONS (14)
  - ABNORMAL BEHAVIOUR [None]
  - ABNORMAL DREAMS [None]
  - ANGER [None]
  - ANXIETY [None]
  - CRYING [None]
  - DEPRESSION [None]
  - INSOMNIA [None]
  - INTENTIONAL OVERDOSE [None]
  - MEMORY IMPAIRMENT [None]
  - NERVOUSNESS [None]
  - PSYCHOTIC DISORDER [None]
  - SCREAMING [None]
  - SMEAR CERVIX ABNORMAL [None]
  - SUICIDE ATTEMPT [None]
